FAERS Safety Report 10528364 (Version 1)
Quarter: 2014Q4

REPORT INFORMATION
  Report Type: Spontaneous
  Country: US (occurrence: None)
  Receive Date: 20141017
  Receipt Date: 20141017
  Transmission Date: 20150528
  Serious: Yes (Death)
  Sender: FDA-Public Use
  Company Number: None

PATIENT
  Age: 73 Year
  Sex: Male
  Weight: 91.63 kg

DRUGS (13)
  1. XTANDI [Suspect]
     Active Substance: ENZALUTAMIDE
     Indication: PROSTATE CANCER
     Dosage: 4 PILLS
     Route: 048
  2. PEPCID [Concomitant]
     Active Substance: FAMOTIDINE
  3. GLUCOSAMINE [Concomitant]
     Active Substance: GLUCOSAMINE
  4. WARFARIN [Concomitant]
     Active Substance: WARFARIN
  5. CLARITIN [Concomitant]
     Active Substance: LORATADINE
  6. TOPROL XL [Concomitant]
     Active Substance: METOPROLOL SUCCINATE
  7. ASPIRIN. [Concomitant]
     Active Substance: ASPIRIN
  8. XTANDI [Concomitant]
     Active Substance: ENZALUTAMIDE
  9. LISINOPRIL. [Concomitant]
     Active Substance: LISINOPRIL
  10. CHONDROITIN [Concomitant]
     Active Substance: CHONDROITIN
  11. TORSEMIDE. [Concomitant]
     Active Substance: TORSEMIDE
  12. XTANDI [Suspect]
     Active Substance: ENZALUTAMIDE
     Indication: METASTASIS
     Dosage: 4 PILLS
     Route: 048
  13. MULTIVITAMIN [Concomitant]
     Active Substance: VITAMINS

REACTIONS (2)
  - Brain death [None]
  - Myocardial infarction [None]

NARRATIVE: CASE EVENT DATE: 20141015
